FAERS Safety Report 6234666-0 (Version None)
Quarter: 2009Q2

REPORT INFORMATION
  Report Type: 
  Country: None (occurrence: None)
  Receive Date: 20090615
  Receipt Date: 20090311
  Transmission Date: 20091009
  Serious: No
  Sender: FDA-Public Use
  Company Number: DSA_33348_2009

PATIENT
  Sex: Male

DRUGS (4)
  1. XENAZINE [Suspect]
     Indication: HUNTINGTON'S CHOREA
     Dosage: (1 DF QD ORAL)
     Route: 048
     Dates: start: 20090225, end: 20090227
  2. URSO /00465701/ [Concomitant]
  3. PAROXETINE HCL [Concomitant]
  4. ZOLOFT [Concomitant]

REACTIONS (3)
  - DIZZINESS [None]
  - FALL [None]
  - HUNTINGTON'S CHOREA [None]
